FAERS Safety Report 12944192 (Version 1)
Quarter: 2016Q4

REPORT INFORMATION
  Report Type: Spontaneous
  Country: US (occurrence: US)
  Receive Date: 20161115
  Receipt Date: 20161115
  Transmission Date: 20170207
  Serious: No
  Sender: FDA-Public Use
  Company Number: US-ROCHE-1695140

PATIENT
  Sex: Female

DRUGS (9)
  1. ZYRTEC [Concomitant]
     Active Substance: CETIRIZINE HYDROCHLORIDE
  2. ADRIAMYCIN [Concomitant]
     Active Substance: DOXORUBICIN HYDROCHLORIDE
  3. TAXOL [Concomitant]
     Active Substance: PACLITAXEL
  4. HERCEPTIN [Suspect]
     Active Substance: TRASTUZUMAB
     Indication: BREAST CANCER
     Route: 042
     Dates: start: 201207
  5. BENADRYL [Concomitant]
     Active Substance: DIPHENHYDRAMINE HYDROCHLORIDE
  6. ALBUTEROL. [Concomitant]
     Active Substance: ALBUTEROL
  7. CLONIDINE. [Concomitant]
     Active Substance: CLONIDINE
  8. PERJETA [Suspect]
     Active Substance: PERTUZUMAB
     Indication: BREAST CANCER
     Route: 042
  9. LAPATINIB [Concomitant]
     Active Substance: LAPATINIB

REACTIONS (11)
  - Dysphonia [Unknown]
  - Hot flush [Unknown]
  - Menopause [Unknown]
  - Mucosal inflammation [Unknown]
  - Dyspnoea [Unknown]
  - Disease recurrence [Unknown]
  - Pain [Unknown]
  - Cough [Unknown]
  - Bronchospasm [Unknown]
  - Feeling abnormal [Unknown]
  - Sinus disorder [Unknown]
